FAERS Safety Report 7982034-3 (Version None)
Quarter: 2011Q4

REPORT INFORMATION
  Report Type: 
  Country: None (occurrence: None)
  Receive Date: 20111215
  Receipt Date: 20111214
  Transmission Date: 20120403
  Serious: Yes (Death)
  Sender: FDA-Public Use
  Company Number: RU-BAYER-200942028GPV

PATIENT
  Age: 36 Year
  Sex: Female

DRUGS (1)
  1. ULTRAVIST 370 [Suspect]
     Indication: RENAL NEOPLASM
     Route: 042
     Dates: start: 20091207, end: 20091207

REACTIONS (7)
  - COUGH [None]
  - CEREBRAL HAEMORRHAGE [None]
  - ANAPHYLACTIC REACTION [None]
  - ASTHENIA [None]
  - BRAIN OEDEMA [None]
  - PULMONARY OEDEMA [None]
  - MYOCARDIAL HAEMORRHAGE [None]
